FAERS Safety Report 6504537-0 (Version None)
Quarter: 2009Q4

REPORT INFORMATION
  Report Type: 
  Country: None (occurrence: None)
  Receive Date: 20091217
  Receipt Date: 20091211
  Transmission Date: 20100525
  Serious: Yes (Hospitalization)
  Sender: FDA-Public Use
  Company Number: BR-ABBOTT-09P-020-0613955-00

PATIENT
  Sex: Female
  Weight: 65 kg

DRUGS (7)
  1. HUMIRA [Suspect]
     Indication: CROHN'S DISEASE
     Route: 058
     Dates: start: 20080101
  2. PENTASA [Concomitant]
     Indication: CROHN'S DISEASE
     Dosage: 500 MG X 8 QD
     Route: 048
  3. VITAMIN E [Concomitant]
     Indication: VITAMIN SUPPLEMENTATION
     Route: 048
  4. ASCORBIC ACID [Concomitant]
     Indication: VITAMIN SUPPLEMENTATION
     Route: 048
  5. LOVAZA [Concomitant]
     Indication: VITAMIN SUPPLEMENTATION
     Route: 048
  6. SELENIUM [Concomitant]
     Indication: VITAMIN SUPPLEMENTATION
     Route: 048
  7. ZINC [Concomitant]
     Indication: VITAMIN SUPPLEMENTATION
     Route: 048

REACTIONS (4)
  - CROHN'S DISEASE [None]
  - CUTANEOUS LUPUS ERYTHEMATOSUS [None]
  - EYE INFLAMMATION [None]
  - FISTULA [None]
